FAERS Safety Report 14213386 (Version 1)
Quarter: 2017Q4

REPORT INFORMATION
  Report Type: Report from Study
  Country: CA (occurrence: CA)
  Receive Date: 20171122
  Receipt Date: 20171122
  Transmission Date: 20180321
  Serious: Yes (Death)
  Sender: FDA-Public Use
  Company Number: PHHY2013CA152542

PATIENT
  Age: 62 Year
  Sex: Female

DRUGS (2)
  1. TASIGNA [Suspect]
     Active Substance: NILOTINIB
     Indication: CHRONIC MYELOID LEUKAEMIA
     Dosage: 400 MG, BID
     Route: 048
     Dates: start: 20110901
  2. TASIGNA [Suspect]
     Active Substance: NILOTINIB
     Dosage: 400 MG, BID
     Route: 048
     Dates: start: 201312

REACTIONS (18)
  - Death [Fatal]
  - Arthralgia [Not Recovered/Not Resolved]
  - Vulvovaginal pruritus [Unknown]
  - Sciatica [Recovering/Resolving]
  - Bone pain [Not Recovered/Not Resolved]
  - Alopecia [Unknown]
  - Somnolence [Unknown]
  - Fatigue [Unknown]
  - Decreased appetite [Unknown]
  - Pruritus [Recovering/Resolving]
  - Dry skin [Unknown]
  - Aphonia [Unknown]
  - Pruritus generalised [Recovering/Resolving]
  - Stress [Unknown]
  - Fall [Unknown]
  - Blood glucose increased [Unknown]
  - Blood pressure increased [Unknown]
  - Abdominal pain upper [Unknown]

NARRATIVE: CASE EVENT DATE: 201511
